FAERS Safety Report 9302806 (Version 2)
Quarter: 2013Q2

REPORT INFORMATION
  Report Type: Spontaneous
  Country: AU (occurrence: None)
  Receive Date: 20130516
  Receipt Date: 20130516
  Transmission Date: 20140414
  Serious: Yes (Hospitalization)
  Sender: FDA-Public Use
  Company Number: 2012000310

PATIENT
  Age: 67 Year
  Sex: Female

DRUGS (3)
  1. ACEON [Suspect]
  2. AMOXICILLIN SODIUM W/CLAVULANATE POTASSIUM [Suspect]
     Dosage: 2 DF, QD
     Dates: start: 20120710, end: 20120710
  3. PARACETAMOL (PARACETAMOL) [Concomitant]

REACTIONS (4)
  - Visual impairment [None]
  - Erythema [None]
  - Anaphylactic reaction [None]
  - Tremor [None]
